FAERS Safety Report 23836445 (Version 1)
Quarter: 2024Q2

REPORT INFORMATION
  Report Type: Spontaneous
  Country: US (occurrence: US)
  Receive Date: 20240509
  Receipt Date: 20240509
  Transmission Date: 20240716
  Serious: Yes (Other)
  Sender: FDA-Public Use
  Company Number: US-AMGEN-USASP2024088489

PATIENT

DRUGS (1)
  1. EPOETIN ALFA [Suspect]
     Active Substance: ERYTHROPOIETIN
     Indication: Nephrogenic anaemia
     Dosage: UNK, MEDIAN DOSE OF 5303 UNITS/WEEK FC VERSUS 6954 UNITS/WEEK AC
     Route: 065

REACTIONS (9)
  - Cardiovascular disorder [Unknown]
  - Hepatobiliary disease [Unknown]
  - Infection [Unknown]
  - Haematemesis [Unknown]
  - Gastrointestinal disorder [Unknown]
  - Serum ferritin increased [Unknown]
  - Gastrooesophageal reflux disease [Unknown]
  - Liver scan abnormal [Unknown]
  - Liver iron concentration increased [Unknown]
